FAERS Safety Report 6858734-5 (Version None)
Quarter: 2010Q3

REPORT INFORMATION
  Report Type: 
  Country: None (occurrence: None)
  Receive Date: 20100719
  Receipt Date: 20080212
  Transmission Date: 20110219
  Serious: No
  Sender: FDA-Public Use
  Company Number: US-PFIZER INC-2008015450

PATIENT
  Age: 37 Year
  Sex: Female
  Weight: 109.09 kg

DRUGS (4)
  1. CHANTIX [Suspect]
     Indication: SMOKING CESSATION THERAPY
     Route: 048
     Dates: start: 20080201, end: 20080201
  2. OTHER HYPNOTICS AND SEDATIVES [Concomitant]
  3. ANALGESICS [Concomitant]
     Indication: BACK PAIN
  4. HYDROCODONE [Concomitant]

REACTIONS (5)
  - DYSGEUSIA [None]
  - FLATULENCE [None]
  - INCONTINENCE [None]
  - OEDEMA PERIPHERAL [None]
  - VARICOSE VEIN [None]
